FAERS Safety Report 6681934-4 (Version None)
Quarter: 2010Q2

REPORT INFORMATION
  Report Type: 
  Country: None (occurrence: None)
  Receive Date: 20100414
  Receipt Date: 20100331
  Transmission Date: 20101027
  Serious: Yes (Hospitalization, Other)
  Sender: FDA-Public Use
  Company Number: IE-GENENTECH-297280

PATIENT
  Sex: Female
  Weight: 50 kg

DRUGS (11)
  1. MABTHERA [Suspect]
     Indication: MYOSITIS
     Dosage: 1 G, UNK
     Route: 042
     Dates: start: 20091014, end: 20091001
  2. MABTHERA [Suspect]
     Dosage: 1 G, UNK
     Route: 042
     Dates: start: 20091029
  3. FOSAMAX [Concomitant]
     Indication: OSTEOPOROSIS
     Dosage: 70 MG, 1/WEEK
     Route: 048
     Dates: start: 20070101
  4. ASPIRIN [Concomitant]
     Indication: DRUG USE FOR UNKNOWN INDICATION
     Dosage: 75 MG, QAM
     Route: 048
  5. PREDNISOLONE [Concomitant]
     Indication: RHEUMATOID ARTHRITIS
     Dosage: 2.5 MG, QAM
     Route: 048
     Dates: start: 20070101
  6. METHYLPREDNISOLONE ACETATE [Concomitant]
     Indication: PREMEDICATION
     Dosage: 200 MG, UNK
     Route: 042
  7. PARACETAMOL [Concomitant]
     Indication: PREMEDICATION
     Dosage: 1 G, UNK
     Route: 048
  8. PIRITON [Concomitant]
     Indication: PREMEDICATION
     Dosage: 10 MG, UNK
  9. CALCICHEW [Concomitant]
     Indication: DRUG USE FOR UNKNOWN INDICATION
  10. DELTACORTILEN [Concomitant]
     Indication: DRUG USE FOR UNKNOWN INDICATION
  11. CALCIUM/VITAMIN D [Concomitant]
     Indication: OSTEOPOROSIS
     Dosage: UNK
     Route: 048
     Dates: start: 20070101

REACTIONS (10)
  - ANXIETY [None]
  - BLOOD GLUCOSE DECREASED [None]
  - CEREBROVASCULAR ACCIDENT [None]
  - CONFUSIONAL STATE [None]
  - DEPRESSION [None]
  - DISORIENTATION [None]
  - HALLUCINATION [None]
  - MYELODYSPLASTIC SYNDROME [None]
  - PARANOIA [None]
  - PROGRESSIVE MULTIFOCAL LEUKOENCEPHALOPATHY [None]
